FAERS Safety Report 9999330 (Version 1)
Quarter: 2014Q1

REPORT INFORMATION
  Report Type: Spontaneous
  Country: US (occurrence: None)
  Receive Date: 20140311
  Receipt Date: 20140311
  Transmission Date: 20141002
  Serious: Yes (Disabling)
  Sender: FDA-Public Use
  Company Number: None

PATIENT
  Age: 50 Year
  Sex: Female
  Weight: 131.54 kg

DRUGS (2)
  1. LEVAQUIN [Suspect]
     Indication: ASTHMA
     Dosage: ONE PILL ONCE DAILY
     Route: 048
     Dates: start: 20131115, end: 20131123
  2. LEVAQUIN [Suspect]
     Indication: BRONCHITIS
     Dosage: ONE PILL ONCE DAILY
     Route: 048
     Dates: start: 20131115, end: 20131123

REACTIONS (8)
  - Neuropathy peripheral [None]
  - Tendon pain [None]
  - Arthralgia [None]
  - Myalgia [None]
  - Ligament pain [None]
  - Walking aid user [None]
  - Quality of life decreased [None]
  - Pain [None]
